FAERS Safety Report 7564154-0 (Version None)
Quarter: 2011Q2

REPORT INFORMATION
  Report Type: 
  Country: None (occurrence: None)
  Receive Date: 20110622
  Receipt Date: 20110617
  Transmission Date: 20111010
  Serious: Yes (Hospitalization)
  Sender: FDA-Public Use
  Company Number: NL-PFIZER INC-2009232065

PATIENT
  Age: 70 Year
  Sex: Male
  Weight: 75 kg

DRUGS (12)
  1. ISOSORBIDE MONONITRATE [Concomitant]
     Dosage: UNK
     Route: 048
  2. LISINOPRIL [Suspect]
     Dosage: UNK
     Route: 048
     Dates: start: 20080921, end: 20090626
  3. METOPROLOL TARTRATE [Suspect]
     Dosage: UNK
     Dates: start: 20081004, end: 20090626
  4. THYRAX [Concomitant]
     Dosage: UNK
     Route: 048
  5. FUROSEMIDE [Suspect]
     Dosage: 80 MG, 2X/DAY
     Route: 048
     Dates: start: 20080201, end: 20090625
  6. EPLERENONE [Suspect]
     Indication: CARDIAC FAILURE
     Dosage: 25 MG, UNK
     Route: 048
     Dates: start: 20081006, end: 20081102
  7. VALSARTAN [Concomitant]
     Dosage: UNK
     Route: 048
  8. ACETYLSALICYLIC ACID [Concomitant]
     Dosage: UNK
     Route: 048
  9. METFORMIN [Concomitant]
     Dosage: UNK
     Route: 048
  10. EFFEXOR [Concomitant]
     Dosage: UNK
     Route: 048
  11. EPLERENONE [Suspect]
     Dosage: 50 MG, UNK
     Route: 048
     Dates: start: 20081103, end: 20090625
  12. SPIRIVA [Concomitant]
     Dosage: UNK
     Route: 048

REACTIONS (4)
  - RENAL IMPAIRMENT [None]
  - CONDITION AGGRAVATED [None]
  - CARDIAC FAILURE [None]
  - MALAISE [None]
